FAERS Safety Report 8340846-0 (Version None)
Quarter: 2012Q2

REPORT INFORMATION
  Report Type: 
  Country: None (occurrence: None)
  Receive Date: 20120503
  Receipt Date: 20120503
  Transmission Date: 20120825
  Serious: No
  Sender: FDA-Public Use
  Company Number: None

PATIENT
  Sex: Male

DRUGS (2)
  1. AVONEX [Suspect]
     Indication: MULTIPLE SCLEROSIS
     Dosage: START DOSE: 15 MCG Q WK X 2 WKS
     Dates: start: 20120413
  2. AVONEX [Suspect]
     Indication: MULTIPLE SCLEROSIS
     Dosage: START DOSE: 15 MCG Q WK X 2 WKS
     Dates: start: 20120420

REACTIONS (4)
  - GAIT DISTURBANCE [None]
  - PYREXIA [None]
  - MOVEMENT DISORDER [None]
  - FEAR OF FALLING [None]
